FAERS Safety Report 9943087 (Version 3)
Quarter: 2014Q1

REPORT INFORMATION
  Report Type: Spontaneous
  Country: US (occurrence: US)
  Receive Date: 20140303
  Receipt Date: 20140319
  Transmission Date: 20141002
  Serious: Yes (Hospitalization)
  Sender: FDA-Public Use
  Company Number: US-009507513-1402USA012360

PATIENT
  Age: 30 Year
  Sex: Female
  Weight: 72.56 kg

DRUGS (4)
  1. NUVARING [Suspect]
     Indication: CONTRACEPTION
     Dosage: CONTINUOUSLY FOR 3 MONTHS PERIODS
     Route: 067
     Dates: start: 201109, end: 20140205
  2. OMEPRAZOLE [Concomitant]
     Dosage: UNK
     Route: 048
  3. FLUTICASONE [Concomitant]
     Dosage: ONE SPRAY IN EACH NOSTRIL, ONCE DAILY
     Route: 045
  4. CYANOCOBALAMIN [Concomitant]
     Dosage: 1000 MICROGRAM, ONCE DAILY

REACTIONS (3)
  - Deep vein thrombosis [Recovering/Resolving]
  - Incorrect drug administration duration [Unknown]
  - Drug prescribing error [Unknown]
